FAERS Safety Report 10011060 (Version 1)
Quarter: 2014Q1

REPORT INFORMATION
  Report Type: Spontaneous
  Country: US (occurrence: US)
  Receive Date: 20140314
  Receipt Date: 20140314
  Transmission Date: 20141002
  Serious: Yes (Hospitalization)
  Sender: FDA-Public Use
  Company Number: US-BAYER-2014-037588

PATIENT
  Age: 43 Year
  Sex: Female
  Weight: 74.97 kg

DRUGS (3)
  1. YAZ [Suspect]
     Route: 048
  2. ZYRTEC [Concomitant]
     Dosage: 10 MG, UNK
     Route: 048
     Dates: start: 20071130
  3. BENADRYL [Concomitant]
     Route: 048

REACTIONS (2)
  - Deep vein thrombosis [Recovering/Resolving]
  - Pulmonary embolism [Recovered/Resolved with Sequelae]
